FAERS Safety Report 9772180 (Version 3)
Quarter: 2014Q4

REPORT INFORMATION
  Report Type: Spontaneous
  Country: US (occurrence: US)
  Receive Date: 20131219
  Receipt Date: 20141010
  Transmission Date: 20150529
  Serious: Yes (Other)
  Sender: FDA-Public Use
  Company Number: US-BAYER-2013-154554

PATIENT
  Age: 33 Year
  Sex: Female
  Weight: 56.24 kg

DRUGS (6)
  1. MELATONIN [Concomitant]
     Active Substance: MELATONIN
     Dosage: 5 MG, UNK
     Route: 048
  2. BENADRYL [Concomitant]
     Active Substance: DIPHENHYDRAMINE HYDROCHLORIDE
  3. ZYRTEC [Concomitant]
     Active Substance: CETIRIZINE HYDROCHLORIDE
  4. MIRENA [Suspect]
     Active Substance: LEVONORGESTREL
     Indication: CONTRACEPTION
     Dosage: 20 MCG/24HR, CONT
     Route: 015
     Dates: start: 20071002, end: 20111202
  5. DEPO-PROVERA [Concomitant]
     Active Substance: MEDROXYPROGESTERONE ACETATE
  6. GINSENG [Concomitant]

REACTIONS (15)
  - Uterine perforation [None]
  - Injury [None]
  - Depressed mood [None]
  - Panic reaction [None]
  - Abdominal pain [None]
  - Anxiety [None]
  - Pelvic pain [None]
  - Emotional distress [None]
  - Fear [None]
  - Medical device discomfort [None]
  - Vaginal haemorrhage [None]
  - Genital haemorrhage [None]
  - Device dislocation [None]
  - Internal injury [None]
  - Depression [None]

NARRATIVE: CASE EVENT DATE: 200711
